FAERS Safety Report 5998141-0 (Version None)
Quarter: 2008Q4

REPORT INFORMATION
  Report Type: 
  Country: None (occurrence: None)
  Receive Date: 20081213
  Receipt Date: 20080624
  Transmission Date: 20090506
  Serious: No
  Sender: FDA-Public Use
  Company Number: US-AMGEN-KDL288852

PATIENT
  Sex: Female

DRUGS (10)
  1. ENBREL [Suspect]
     Indication: PSORIASIS
     Route: 058
     Dates: start: 20080613
  2. ASPIRIN [Concomitant]
  3. CLOBETASOL PROPIONATE [Concomitant]
  4. DOVONEX [Concomitant]
  5. HYDROCHLOROTHIAZIDE [Concomitant]
  6. NORVASC [Concomitant]
  7. CYMBALTA [Concomitant]
  8. PRILOSEC [Concomitant]
  9. TRAMADOL HCL [Concomitant]
  10. ATENOLOL [Concomitant]

REACTIONS (2)
  - FALL [None]
  - WRIST FRACTURE [None]
